FAERS Safety Report 13586434 (Version 1)
Quarter: 2017Q2

REPORT INFORMATION
  Report Type: Spontaneous
  Country: PT (occurrence: PT)
  Receive Date: 20170526
  Receipt Date: 20170526
  Transmission Date: 20170830
  Serious: Yes (Other)
  Sender: FDA-Public Use
  Company Number: PT-MYLANLABS-2017M1031315

PATIENT

DRUGS (1)
  1. ROPIVACAINE [Suspect]
     Active Substance: ROPIVACAINE
     Indication: NERVE BLOCK
     Dosage: 25 ML, UNK

REACTIONS (3)
  - Tongue biting [Recovered/Resolved]
  - Loss of consciousness [Recovered/Resolved]
  - Generalised tonic-clonic seizure [Recovered/Resolved]
